FAERS Safety Report 8967161 (Version 1)
Quarter: 2012Q4

REPORT INFORMATION
  Report Type: 
  Country: US (occurrence: US)
  Receive Date: 20121214
  Receipt Date: 20121214
  Transmission Date: 20130627
  Serious: No
  Sender: FDA-Public Use
  Company Number: US-BAYER-2012-121521

PATIENT
  Age: 28 Year
  Sex: Male

DRUGS (3)
  1. STIVARGA [Suspect]
     Indication: METASTATIC COLON CANCER
     Dosage: 160 mg, QD
     Dates: start: 20121011, end: 201210
  2. STIVARGA [Suspect]
     Indication: METASTATIC COLON CANCER
     Dosage: 120 mg, QD
     Dates: start: 2012
  3. STIVARGA [Suspect]
     Indication: METASTATIC COLON CANCER
     Dosage: 160 mg, QD (40 mg 4 tablets daily)
     Route: 048
     Dates: start: 20121013

REACTIONS (2)
  - Blood bilirubin increased [Recovered/Resolved]
  - Fatigue [Not Recovered/Not Resolved]
